FAERS Safety Report 4546545-5 (Version None)
Quarter: 2005Q1

REPORT INFORMATION
  Report Type: 
  Country: None (occurrence: None)
  Receive Date: 20050103
  Receipt Date: 20041222
  Transmission Date: 20050727
  Serious: Yes (Other)
  Sender: FDA-Public Use
  Company Number: 2004118173

PATIENT
  Age: 23 Year
  Sex: Female
  Weight: 79.3795 kg

DRUGS (1)
  1. DEPO-PROVERA [Suspect]
     Indication: CONTRACEPTION
     Dosage: 150 MG (150 MG, EVERY 10-13 WKS 1ST INJ), INTRAMUSCULAR
     Route: 030
     Dates: start: 20010919, end: 20010919

REACTIONS (2)
  - HAEMORRHAGE [None]
  - SMEAR CERVIX ABNORMAL [None]
